FAERS Safety Report 21996391 (Version 2)
Quarter: 2024Q1

REPORT INFORMATION
  Report Type: Spontaneous
  Country: US (occurrence: US)
  Receive Date: 20230215
  Receipt Date: 20240205
  Transmission Date: 20240409
  Serious: Yes (Hospitalization, Other)
  Sender: FDA-Public Use
  Company Number: US-PFIZER INC-202300066554

PATIENT
  Age: 57 Year
  Sex: Female

DRUGS (8)
  1. IBRANCE [Suspect]
     Active Substance: PALBOCICLIB
     Dosage: 75 MG, CYCLIC (TAKE 1 TABLET BY MOUTH DAILY FOR 21 DAYS, THEN OFF FOR 7 DAYS)
     Route: 048
     Dates: start: 20220401
  2. IBRANCE [Suspect]
     Active Substance: PALBOCICLIB
     Dosage: 75 MG, CYCLIC (2 WEEKS ON AND 2 WEEKS OFF)
     Dates: start: 202212
  3. IBRANCE [Suspect]
     Active Substance: PALBOCICLIB
     Dosage: 75 MG, CYCLIC(1 DF DAILY FOR 14 DAYS, THEN OFF FOR 14 DAYS)
     Dates: start: 20220401
  4. CEPHALEXIN [Concomitant]
     Active Substance: CEPHALEXIN
     Dosage: UNK
  5. ELIQUIS [Concomitant]
     Active Substance: APIXABAN
     Dosage: UNK
  6. FASLODEX [Concomitant]
     Active Substance: FULVESTRANT
     Dosage: UNK
  7. METOPROLOL [Concomitant]
     Active Substance: METOPROLOL
     Dosage: UNK
  8. SYNTHROID [Concomitant]
     Active Substance: LEVOTHYROXINE SODIUM
     Dosage: UNK

REACTIONS (7)
  - Appendicitis [Unknown]
  - COVID-19 [Unknown]
  - Dental implantation [Unknown]
  - Blood test abnormal [Unknown]
  - Full blood count decreased [Not Recovered/Not Resolved]
  - Neutrophil count decreased [Not Recovered/Not Resolved]
  - Off label use [Unknown]

NARRATIVE: CASE EVENT DATE: 20221201
